FAERS Safety Report 12795668 (Version 3)
Quarter: 2017Q1

REPORT INFORMATION
  Report Type: Spontaneous
  Country: AU (occurrence: AU)
  Receive Date: 20160929
  Receipt Date: 20170303
  Transmission Date: 20170428
  Serious: Yes (Hospitalization)
  Sender: FDA-Public Use
  Company Number: AU-CELGENEUS-AUS-2016096386

PATIENT
  Age: 72 Year
  Sex: Female
  Weight: 68 kg

DRUGS (20)
  1. DARATUMUMAB [Suspect]
     Active Substance: DARATUMUMAB
     Indication: PLASMA CELL MYELOMA
     Dosage: 1088MG
     Route: 041
     Dates: start: 20160302
  2. DEXAMETHASONE. [Suspect]
     Active Substance: DEXAMETHASONE
     Indication: PLASMA CELL MYELOMA
     Dosage: 20MG
     Route: 041
     Dates: start: 20160308
  3. SERTRALINE [Concomitant]
     Active Substance: SERTRALINE HYDROCHLORIDE
     Indication: ANXIETY
     Dosage: 50MG
     Route: 048
     Dates: start: 2000
  4. LACTULOSE. [Concomitant]
     Active Substance: LACTULOSE
     Indication: CONSTIPATION PROPHYLAXIS
     Dosage: 20ML
     Route: 048
     Dates: start: 20160331
  5. NEXIUM [Concomitant]
     Active Substance: ESOMEPRAZOLE MAGNESIUM
     Indication: GASTROINTESTINAL DISORDER THERAPY
     Dosage: 40MG
     Route: 048
     Dates: start: 20160823
  6. ELIDIUR [Concomitant]
     Indication: HYPERTENSION
     Dosage: 12.5MG
     Route: 048
     Dates: start: 2000
  7. VALACICLOVIR [Concomitant]
     Active Substance: VALACYCLOVIR HYDROCHLORIDE
     Indication: HERPES ZOSTER
     Dosage: 500MG
     Route: 048
     Dates: start: 20160516
  8. REVLIMID [Suspect]
     Active Substance: LENALIDOMIDE
     Indication: PLASMA CELL MYELOMA
     Dosage: 40MG
     Route: 048
     Dates: start: 20160302
  9. PARACETAMOL [Concomitant]
     Active Substance: ACETAMINOPHEN
     Indication: BONE PAIN
     Dosage: 1000MG
     Route: 048
     Dates: start: 20160111
  10. METOCLOPRAMIDE HYDROCHLORIDE. [Concomitant]
     Active Substance: METOCLOPRAMIDE HYDROCHLORIDE
     Indication: PROPHYLAXIS OF NAUSEA AND VOMITING
     Dosage: 10MG
     Route: 048
     Dates: start: 20160310
  11. OXAZEPAM. [Concomitant]
     Active Substance: OXAZEPAM
     Indication: ANXIETY
     Dosage: 15MG
     Route: 048
     Dates: start: 20160317
  12. CLONAZEPAM. [Concomitant]
     Active Substance: CLONAZEPAM
     Indication: ANXIETY
     Dosage: 5MG
     Route: 048
     Dates: start: 20160324
  13. METOCLOPRAMIDE HYDROCHLORIDE. [Concomitant]
     Active Substance: METOCLOPRAMIDE HYDROCHLORIDE
     Indication: PROPHYLAXIS OF NAUSEA AND VOMITING
  14. LORAZEPAM. [Concomitant]
     Active Substance: LORAZEPAM
     Indication: PROPHYLAXIS
     Dosage: 1MG
     Route: 048
     Dates: start: 20160310
  15. TEMAZEPAM. [Concomitant]
     Active Substance: TEMAZEPAM
     Indication: SLEEP DISORDER
     Dosage: 20MG
     Route: 048
     Dates: start: 20160525
  16. FENTANYL. [Concomitant]
     Active Substance: FENTANYL
     Indication: POST HERPETIC NEURALGIA
     Dosage: NOT PROVIDED
     Route: 061
     Dates: start: 20160720
  17. CRESTOR [Concomitant]
     Active Substance: ROSUVASTATIN CALCIUM
     Indication: HYPERCHOLESTEROLAEMIA
     Dosage: 5MG
     Route: 048
     Dates: start: 2000
  18. OXYCODONE HYDROCHLORIDE. [Concomitant]
     Active Substance: OXYCODONE HYDROCHLORIDE
     Indication: BONE PAIN
     Dosage: 15MG
     Route: 048
     Dates: start: 20160111
  19. COLOXYL WITH SENNA [Concomitant]
     Active Substance: DOCUSATE\SENNOSIDES
     Indication: CONSTIPATION PROPHYLAXIS
     Dosage: 50MG
     Route: 048
     Dates: start: 20160331
  20. PREGABALIN. [Concomitant]
     Active Substance: PREGABALIN
     Indication: POST HERPETIC NEURALGIA
     Dosage: 300MG
     Route: 048
     Dates: start: 20160524

REACTIONS (1)
  - Vaginal haemorrhage [Recovered/Resolved]

NARRATIVE: CASE EVENT DATE: 20160915
